FAERS Safety Report 5413469-0 (Version None)
Quarter: 2007Q3

REPORT INFORMATION
  Report Type: 
  Country: None (occurrence: None)
  Receive Date: 20070814
  Receipt Date: 20070803
  Transmission Date: 20080115
  Serious: Yes (Hospitalization)
  Sender: FDA-Public Use
  Company Number: US-JNJFOC-20070801079

PATIENT
  Sex: Female
  Weight: 70.31 kg

DRUGS (18)
  1. REMICADE [Suspect]
     Indication: RHEUMATOID ARTHRITIS
     Route: 042
  2. ASPIRIN [Concomitant]
  3. METHOTREXATE [Concomitant]
  4. LIPITOR [Concomitant]
  5. ATIVAN [Concomitant]
  6. ZOLOFT [Concomitant]
  7. LOPRESSOR [Concomitant]
  8. ANALAPRIL [Concomitant]
  9. LYRICA [Concomitant]
  10. PLAVIX [Concomitant]
  11. FOLIC ACID [Concomitant]
  12. TRAZODONE HCL [Concomitant]
  13. SOMA [Concomitant]
  14. OXYCODONE HCL [Concomitant]
  15. FURICET [Concomitant]
  16. IRON PILLS [Concomitant]
  17. PREDNISONE TAB [Concomitant]
  18. TYLENOL (CAPLET) [Concomitant]

REACTIONS (4)
  - CENTRAL NERVOUS SYSTEM LESION [None]
  - GRAND MAL CONVULSION [None]
  - PNEUMONIA ASPIRATION [None]
  - TYPE 2 DIABETES MELLITUS [None]
